FAERS Safety Report 9252231 (Version 3)
Quarter: 2013Q3

REPORT INFORMATION
  Report Type: Spontaneous
  Country: US (occurrence: US)
  Receive Date: 20130424
  Receipt Date: 20130927
  Transmission Date: 20140515
  Serious: Yes (Hospitalization)
  Sender: FDA-Public Use
  Company Number: US-ASTRAZENECA-2013SE27323

PATIENT
  Age: 50 Year
  Sex: Female
  Weight: 52.2 kg

DRUGS (29)
  1. NEXIUM [Suspect]
     Indication: GASTROOESOPHAGEAL REFLUX DISEASE
     Dosage: ONCE DAY
     Route: 048
     Dates: start: 2005, end: 2008
  2. NEXIUM [Suspect]
     Indication: GASTROOESOPHAGEAL REFLUX DISEASE
     Dosage: ONCE DAY
     Route: 048
     Dates: start: 2005, end: 2008
  3. NEXIUM [Suspect]
     Indication: GASTROOESOPHAGEAL REFLUX DISEASE
     Route: 048
     Dates: start: 20050507
  4. NEXIUM [Suspect]
     Indication: GASTROOESOPHAGEAL REFLUX DISEASE
     Route: 048
     Dates: start: 20050507
  5. TUMS [Concomitant]
     Indication: GASTROOESOPHAGEAL REFLUX DISEASE
     Dosage: ONE OR THRICE A MONTH
     Dates: start: 201307
  6. PROTONIX [Concomitant]
  7. PEPTO BISMOL [Concomitant]
     Indication: NAUSEA
     Dosage: TAKE 2 TSPS AT A TIME WHEN NEEDED
  8. PEPTO BISMOL [Concomitant]
     Indication: GASTRIC DISORDER
     Dosage: TAKE 2 TSPS AT A TIME WHEN NEEDED
  9. LEVOTHYROXINE [Concomitant]
     Indication: THYROID DISORDER
     Dates: start: 20041210
  10. CETIRIZINE [Concomitant]
     Indication: HYPERSENSITIVITY
  11. AMBIEN [Concomitant]
     Indication: SLEEP DISORDER
  12. ESTROGEN [Concomitant]
     Indication: MENOPAUSE
  13. CRESTOR [Concomitant]
  14. ABILIFY [Concomitant]
     Dosage: DAILY
  15. TOPIRAMATE [Concomitant]
     Indication: MIGRAINE
     Route: 048
     Dates: start: 20080721
  16. LEVAQUIN [Concomitant]
     Indication: MIGRAINE
     Route: 048
     Dates: start: 20020614
  17. PREVACID [Concomitant]
     Indication: GASTROOESOPHAGEAL REFLUX DISEASE
     Dates: start: 200809
  18. PREVACID [Concomitant]
     Indication: GASTROOESOPHAGEAL REFLUX DISEASE
     Route: 048
     Dates: start: 20080906
  19. SEROQUEL [Concomitant]
     Route: 048
     Dates: start: 20050830
  20. SEROQUEL [Concomitant]
     Route: 048
     Dates: start: 20050830
  21. EFFEXOR XR [Concomitant]
     Indication: DEPRESSION
     Route: 048
     Dates: start: 20050830
  22. EFFEXOR XR [Concomitant]
     Indication: DEPRESSION
     Route: 048
     Dates: start: 20050830
  23. TRAZODONE [Concomitant]
     Dosage: 1/2 TO 1 TABLET AT NIGHT
     Route: 048
  24. ALLEGRA [Concomitant]
  25. PREDNISONE [Concomitant]
     Route: 048
     Dates: start: 20040920
  26. AZITHROMYCIN [Concomitant]
  27. PEPCID [Concomitant]
     Indication: GASTROOESOPHAGEAL REFLUX DISEASE
  28. ZANTAC [Concomitant]
     Indication: GASTROOESOPHAGEAL REFLUX DISEASE
  29. CALCIUM W/VITAMIN D [Concomitant]

REACTIONS (12)
  - Chest pain [Unknown]
  - Osteoporosis [Unknown]
  - Wrist fracture [Unknown]
  - Fall [Unknown]
  - Multiple fractures [Unknown]
  - Staphylococcal infection [Unknown]
  - Foot fracture [Unknown]
  - Calcium deficiency [Unknown]
  - Bone disorder [Unknown]
  - Vitamin D deficiency [Unknown]
  - Hypothyroidism [Unknown]
  - Depression [Unknown]
